FAERS Safety Report 17346714 (Version 1)
Quarter: 2020Q1

REPORT INFORMATION
  Report Type: Spontaneous
  Country: PT (occurrence: PT)
  Receive Date: 20200130
  Receipt Date: 20200130
  Transmission Date: 20200409
  Serious: Yes (Hospitalization)
  Sender: FDA-Public Use
  Company Number: PHHY2019PT224246

PATIENT
  Age: 62 Year
  Sex: Male

DRUGS (10)
  1. EVEROLIMUS. [Suspect]
     Active Substance: EVEROLIMUS
     Indication: HEPATIC CANCER
  2. GENTAMICIN. [Concomitant]
     Active Substance: GENTAMICIN
     Indication: ENDOCARDITIS
     Dosage: UNK
     Route: 065
  3. CEFEPIME [Concomitant]
     Active Substance: CEFEPIME HYDROCHLORIDE
     Indication: ENDOCARDITIS
     Dosage: UNK
     Route: 065
  4. DIGOXIN. [Concomitant]
     Active Substance: DIGOXIN
     Indication: ENDOCARDITIS
     Dosage: UNK
     Route: 065
  5. EVEROLIMUS. [Suspect]
     Active Substance: EVEROLIMUS
     Indication: IMMUNOSUPPRESSANT DRUG THERAPY
     Dosage: UNK
     Route: 065
  6. LEVOFLOXACIN. [Concomitant]
     Active Substance: LEVOFLOXACIN
     Indication: ENDOCARDITIS
     Dosage: UNK
     Route: 065
  7. AMPICILLIN [Concomitant]
     Active Substance: AMPICILLIN
     Indication: ENDOCARDITIS
     Dosage: UNK
     Route: 065
  8. PIPERACILLIN/TAZOBACTAM [Concomitant]
     Active Substance: PIPERACILLIN SODIUM\TAZOBACTAM SODIUM
     Indication: PROTEUS TEST POSITIVE
     Dosage: UNK
     Route: 065
  9. EVEROLIMUS. [Suspect]
     Active Substance: EVEROLIMUS
     Indication: LIVER TRANSPLANT
     Route: 048
  10. FLUCLOXACILLIN [Concomitant]
     Active Substance: FLUCLOXACILLIN
     Indication: ENDOCARDITIS
     Dosage: UNK
     Route: 065

REACTIONS (8)
  - Orthopnoea [Recovered/Resolved]
  - Dyspnoea [Unknown]
  - Cardiac failure acute [Unknown]
  - Aortic valve incompetence [Recovered/Resolved]
  - Pyrexia [Recovered/Resolved]
  - Endocarditis bacterial [Recovering/Resolving]
  - Pulmonary oedema [Recovering/Resolving]
  - Cough [Unknown]
